FAERS Safety Report 10168279 (Version 1)
Quarter: 2014Q2

REPORT INFORMATION
  Report Type: Spontaneous
  Country: US (occurrence: US)
  Receive Date: 20140512
  Receipt Date: 20140512
  Transmission Date: 20141212
  Serious: No
  Sender: FDA-Public Use
  Company Number: US-009507513-1404USA015374

PATIENT
  Sex: 0
  Weight: 128.8 kg

DRUGS (2)
  1. NEXPLANON [Suspect]
     Dosage: 68 MG, EVERY 3 YEARS
     Route: 059
     Dates: start: 20140428
  2. NEXPLANON [Suspect]
     Dosage: 68 UNK, UNK
     Dates: start: 20140428

REACTIONS (2)
  - Device difficult to use [Recovered/Resolved]
  - No adverse event [Unknown]
